FAERS Safety Report 6974983-X (Version None)
Quarter: 2010Q3

REPORT INFORMATION
  Report Type: 
  Country: None (occurrence: None)
  Receive Date: 20100909
  Receipt Date: 20090113
  Transmission Date: 20110219
  Serious: No
  Sender: FDA-Public Use
  Company Number: US-WYE-H07706709

PATIENT
  Sex: Female
  Weight: 80.36 kg

DRUGS (4)
  1. PRISTIQ [Suspect]
     Indication: DEPRESSION
     Route: 048
     Dates: start: 20080501
  2. EXCEDRIN P.M. [Concomitant]
  3. SYNTHROID [Concomitant]
  4. BENADRYL [Concomitant]

REACTIONS (1)
  - DRUG SCREEN POSITIVE [None]
